FAERS Safety Report 19462109 (Version 2)
Quarter: 2021Q3

REPORT INFORMATION
  Report Type: Report from Study
  Country: US (occurrence: US)
  Receive Date: 20210625
  Receipt Date: 20210702
  Transmission Date: 20211014
  Serious: Yes (Hospitalization, Other)
  Sender: FDA-Public Use
  Company Number: US-BIOVITRUM-2021US0032

PATIENT
  Age: 65 Year
  Sex: Female

DRUGS (14)
  1. KINERET [Suspect]
     Active Substance: ANAKINRA
     Indication: KERATITIS
  2. CALCIUM [Concomitant]
     Active Substance: CALCIUM
  3. KINERET [Suspect]
     Active Substance: ANAKINRA
     Indication: PERICARDITIS
     Dosage: 100MG/.0.67ML
     Route: 058
     Dates: start: 20201224
  4. PREDNISONE. [Concomitant]
     Active Substance: PREDNISONE
  5. CELLCEPT [Concomitant]
     Active Substance: MYCOPHENOLATE MOFETIL\MYCOPHENOLATE MOFETIL HYDROCHLORIDE
  6. MESTINON [Concomitant]
     Active Substance: PYRIDOSTIGMINE BROMIDE
  7. WELLBUTRIN [Concomitant]
     Active Substance: BUPROPION HYDROCHLORIDE
  8. COLCHICINE. [Concomitant]
     Active Substance: COLCHICINE
  9. KINERET [Suspect]
     Active Substance: ANAKINRA
     Indication: SJOGREN^S SYNDROME
  10. GABAPENTIN. [Concomitant]
     Active Substance: GABAPENTIN
  11. ZETIA [Concomitant]
     Active Substance: EZETIMIBE
  12. VITAMIN D [Concomitant]
     Active Substance: VITAMIN D NOS
  13. KINERET [Suspect]
     Active Substance: ANAKINRA
     Indication: SYSTEMIC LUPUS ERYTHEMATOSUS
     Route: 058
     Dates: start: 202012
  14. ESTRACE [Concomitant]
     Active Substance: ESTRADIOL

REACTIONS (9)
  - Off label use [Unknown]
  - Alopecia [Unknown]
  - Headache [Unknown]
  - Injection site pain [Unknown]
  - Herpes zoster [Unknown]
  - Cellulitis [Unknown]
  - White blood cell count increased [Unknown]
  - Injection site mass [Unknown]
  - Sensory loss [Unknown]

NARRATIVE: CASE EVENT DATE: 20201224
